FAERS Safety Report 9231219 (Version 4)
Quarter: 2013Q4

REPORT INFORMATION
  Report Type: Report from Study
  Country: CA (occurrence: CA)
  Receive Date: 20130415
  Receipt Date: 20131030
  Transmission Date: 20140711
  Serious: Yes (Other)
  Sender: FDA-Public Use
  Company Number: CA-UCBSA-082898

PATIENT
  Age: 77 Year
  Sex: Male

DRUGS (12)
  1. CIMZIA [Suspect]
     Indication: RHEUMATOID ARTHRITIS
     Route: 058
     Dates: start: 20121220, end: 2013
  2. CIMZIA [Suspect]
     Indication: RHEUMATOID ARTHRITIS
     Dosage: WEEKS: 0-2-4
     Route: 058
     Dates: start: 20121108, end: 20121206
  3. ARAVA [Suspect]
     Indication: RHEUMATOID ARTHRITIS
     Dosage: DOSE PER INTAKE: 20 MG
     Route: 048
     Dates: start: 201301
  4. PREDNISONE [Suspect]
     Indication: RHEUMATOID ARTHRITIS
     Route: 048
  5. PREDNISONE [Suspect]
     Indication: RHEUMATOID ARTHRITIS
     Dosage: DOSE PER INTAKE :12 MG
     Route: 048
     Dates: start: 1998
  6. ELTROXIN [Concomitant]
     Dosage: UNKNOWN DOSE
  7. SAW PALMETTO [Concomitant]
     Dosage: UNKNOWN DOSE
  8. CALTRATE [Concomitant]
     Dosage: UNKNOWN DOSE
  9. PANTALOC [Concomitant]
     Dosage: UNKNOWN DOSE
  10. CENTRUM [Concomitant]
     Dosage: UNKNOWN DOSE
  11. DIVALPROEX [Concomitant]
     Dosage: UNKNOWN DOSE
  12. FOSAMAX [Concomitant]
     Dosage: UNKNOWN DOSE

REACTIONS (3)
  - Pneumonia [Recovered/Resolved with Sequelae]
  - Localised infection [Not Recovered/Not Resolved]
  - Urinary tract infection [Not Recovered/Not Resolved]
